FAERS Safety Report 10312839 (Version 1)
Quarter: 2014Q3

REPORT INFORMATION
  Report Type: Spontaneous
  Country: IT (occurrence: None)
  Receive Date: 20140716
  Receipt Date: 20140716
  Transmission Date: 20150326
  Serious: Yes (Hospitalization)
  Sender: FDA-Public Use
  Company Number: FK201402741

PATIENT
  Age: 63 Year
  Sex: Female

DRUGS (6)
  1. MABTHERA [Suspect]
     Active Substance: RITUXIMAB
     Indication: DIFFUSE LARGE B-CELL LYMPHOMA RECURRENT
     Dosage: 600 MG, CYCLICAL, INTRAVENOUS (NOT OTHERWISE SPECIFIED)
     Route: 042
     Dates: start: 20140301, end: 20140402
  2. DEPOCYTE [Suspect]
     Active Substance: CYTARABINE
     Indication: DIFFUSE LARGE B-CELL LYMPHOMA RECURRENT
     Route: 037
     Dates: start: 20140306, end: 20140407
  3. CYTARABINE (MANUFACTURER UNKNOWN) (CYTARABINE) (CYTARABINE) [Suspect]
     Active Substance: CYTARABINE
     Indication: DIFFUSE LARGE B-CELL LYMPHOMA RECURRENT
     Dosage: 12800 MG, CYCLICAL, INTRAVENOUS (NOT OTHERWISE SPECIFIED)
     Route: 042
     Dates: start: 20140303, end: 20140405
  4. METHOTREXATE SODIUM. [Suspect]
     Active Substance: METHOTREXATE SODIUM
     Indication: DIFFUSE LARGE B-CELL LYMPHOMA RECURRENT
     Dosage: 5600 MG, CYCLICAL INTRAVENOUS (NOT OTHERWISE SPECIFIED)
     Route: 042
     Dates: start: 20140302, end: 20140403
  5. THIOTEPA. [Suspect]
     Active Substance: THIOTEPA
     Indication: DIFFUSE LARGE B-CELL LYMPHOMA RECURRENT
     Dosage: 48 MG, CYCLICAL, INTRAVENOUS (NOT OTHERWISE SPECIFIED)
     Route: 042
     Dates: start: 20140305, end: 20140406
  6. SOLDESAM (DEXAMETHASOE SODIUM PHOSPHATE) [Concomitant]

REACTIONS (3)
  - Inflammation [None]
  - Thrombocytopenia [None]
  - Febrile neutropenia [None]

NARRATIVE: CASE EVENT DATE: 20140412
